FAERS Safety Report 22044711 (Version 1)
Quarter: 2023Q1

REPORT INFORMATION
  Report Type: Spontaneous
  Country: US (occurrence: None)
  Receive Date: 20230227
  Receipt Date: 20230227
  Transmission Date: 20230417
  Serious: Yes (unspecified)
  Sender: FDA-Public Use
  Company Number: None

PATIENT
  Age: 67 Year
  Sex: Female
  Weight: 101.25 kg

DRUGS (9)
  1. GADAVIST [Suspect]
     Active Substance: GADOBUTROL
     Indication: Scan with contrast
     Dosage: OTHER QUANTITY : 1 INJECTION(S);?OTHER FREQUENCY : ONE TIME;?
     Route: 042
     Dates: start: 20230206, end: 20230206
  2. LOSARTAN POTASSIUM [Concomitant]
  3. METOPROLOL SUCCINATE [Concomitant]
     Active Substance: METOPROLOL SUCCINATE
  4. ROSUVASTATIN CALCIUM [Concomitant]
  5. GABAPENTIN [Concomitant]
     Active Substance: GABAPENTIN
  6. ADVAIR DISKUS [Concomitant]
     Active Substance: FLUTICASONE PROPIONATE\SALMETEROL XINAFOATE
  7. VITAMIN D2 [Concomitant]
     Active Substance: ERGOCALCIFEROL
  8. MULTIVITAMIN [Concomitant]
  9. CALCIUM [Concomitant]

REACTIONS (6)
  - Contrast media allergy [None]
  - Sneezing [None]
  - Anxiety [None]
  - Sinusitis [None]
  - Cough [None]
  - Eye swelling [None]

NARRATIVE: CASE EVENT DATE: 20230206
